FAERS Safety Report 5121649-7 (Version None)
Quarter: 2006Q4

REPORT INFORMATION
  Report Type: 
  Country: None (occurrence: None)
  Receive Date: 20061006
  Receipt Date: 20060925
  Transmission Date: 20070319
  Serious: Yes (Hospitalization)
  Sender: FDA-Public Use
  Company Number: HQWYE105025SEP06

PATIENT
  Sex: Female

DRUGS (13)
  1. ENBREL [Suspect]
     Indication: RHEUMATOID ARTHRITIS
     Route: 058
     Dates: start: 20060304, end: 20060729
  2. ENBREL [Suspect]
     Route: 058
     Dates: start: 20060520, end: 20060729
  3. RHEUMATREX [Suspect]
     Indication: DRUG USE FOR UNKNOWN INDICATION
     Route: 048
     Dates: end: 20060324
  4. RHEUMATREX [Suspect]
     Route: 048
     Dates: start: 20060405, end: 20060729
  5. BACTRIM [Concomitant]
     Dosage: UNKNOWN
     Route: 048
  6. ALENDRONATE SODIUM [Concomitant]
     Dosage: UNKNOWN
     Route: 048
  7. MUCOSTA [Concomitant]
     Dosage: UNKNOWN
     Route: 048
  8. LENDORMIN [Concomitant]
     Dosage: UNKNOWN
     Route: 048
  9. PREDONINE [Concomitant]
     Indication: RHEUMATOID ARTHRITIS
     Dosage: UNKNOWN
     Route: 048
  10. FOLIAMIN [Concomitant]
     Dosage: UNKNOWN
     Route: 048
  11. CLARITHROMYCIN [Concomitant]
     Dosage: UNKNOWN
     Route: 048
  12. MUCOSOLVAN [Concomitant]
     Dosage: UNKNOWN
     Route: 048
  13. ZANTAC [Concomitant]
     Dosage: UNKNOWN
     Route: 048

REACTIONS (1)
  - ENTEROCOLITIS [None]
